FAERS Safety Report 10440949 (Version 3)
Quarter: 2015Q1

REPORT INFORMATION
  Report Type: Spontaneous
  Country: US (occurrence: None)
  Receive Date: 20140905
  Receipt Date: 20150116
  Transmission Date: 20150720
  Serious: Yes (Hospitalization, Other)
  Sender: FDA-Public Use
  Company Number: ADR-2014-01591

PATIENT
  Age: 57 Year
  Sex: Male

DRUGS (5)
  1. CARDIAC MEDICATION [Suspect]
     Active Substance: UNSPECIFIED INGREDIENT
  2. BUPIVACAINE [Suspect]
     Active Substance: BUPIVACAINE
     Route: 048
  3. COMPOUNDED BACLOFEN INTRATHECAL [Suspect]
     Active Substance: BACLOFEN
     Indication: MUSCLE SPASTICITY
  4. HYDROMORPHINE [Suspect]
     Active Substance: HYDROMORPHONE
     Indication: SPINAL CORD INJURY
  5. CLONIDINE. [Suspect]
     Active Substance: CLONIDINE

REACTIONS (7)
  - Drug withdrawal syndrome [None]
  - Hyperhidrosis [None]
  - Musculoskeletal disorder [None]
  - Treatment noncompliance [None]
  - Myocardial infarction [None]
  - Blood urine present [None]
  - Cardiac disorder [None]
